FAERS Safety Report 10007029 (Version 2)
Quarter: 2014Q1

REPORT INFORMATION
  Report Type: Spontaneous
  Country: US (occurrence: None)
  Receive Date: 20140311
  Receipt Date: 20140314
  Transmission Date: 20141002
  Serious: Yes (Other)
  Sender: FDA-Public Use
  Company Number: AUR-APL-2014-02358

PATIENT
  Age: 63 Year
  Sex: Female

DRUGS (7)
  1. ALENDRONIC ACID [Suspect]
     Indication: BONE DENSITY ABNORMAL
     Dosage: 1 IN 1
     Route: 048
     Dates: end: 20140302
  2. ELAVIL (ALLOPURINOL) [Concomitant]
  3. CALCIUM (CALCIUM) [Concomitant]
  4. PARAFON FORTE (PARAFON) [Concomitant]
  5. VOLTAREN (DICLOFENAC) [Concomitant]
  6. TYLENOL W/CODEINE (PANADEINE CO) [Concomitant]
  7. DICLOFENAC (DICLOFENAC) [Concomitant]

REACTIONS (10)
  - Bone pain [None]
  - Myalgia [None]
  - Paraesthesia [None]
  - Hypoaesthesia [None]
  - Abasia [None]
  - Muscular weakness [None]
  - Fall [None]
  - Insomnia [None]
  - Trismus [None]
  - Adverse drug reaction [None]
